FAERS Safety Report 9255448 (Version 1)
Quarter: 2013Q2

REPORT INFORMATION
  Report Type: Spontaneous
  Country: CA (occurrence: CA)
  Receive Date: 20130425
  Receipt Date: 20130425
  Transmission Date: 20140414
  Serious: Yes (Hospitalization)
  Sender: FDA-Public Use
  Company Number: CA-ASTRAZENECA-2013SE26533

PATIENT
  Age: 29 Year
  Sex: Male
  Weight: 104.3 kg

DRUGS (2)
  1. SEROQUEL [Suspect]
     Indication: BIPOLAR DISORDER
     Route: 048
  2. MULTIVITAMINS [Concomitant]

REACTIONS (8)
  - Suicidal ideation [Unknown]
  - Aggression [Unknown]
  - Depression [Unknown]
  - Homicidal ideation [Unknown]
  - Impulsive behaviour [Recovered/Resolved]
  - Sensation of heaviness [Recovered/Resolved]
  - Dyskinesia [Unknown]
  - Muscle spasms [Recovered/Resolved]
